FAERS Safety Report 8995835 (Version 2)
Quarter: 2013Q1

REPORT INFORMATION
  Report Type: Spontaneous
  Country: US (occurrence: US)
  Receive Date: 20130103
  Receipt Date: 20130129
  Transmission Date: 20140127
  Serious: No
  Sender: FDA-Public Use
  Company Number: PHEH2012US025527

PATIENT
  Sex: Male

DRUGS (5)
  1. TASIGNA [Suspect]
     Indication: CHRONIC MYELOID LEUKAEMIA
     Dosage: 600 MG, UNK
     Route: 048
  2. NORCO [Concomitant]
  3. SYNTHROID [Concomitant]
  4. NEXUM [Concomitant]
  5. ATENOLOL [Concomitant]

REACTIONS (5)
  - Lip disorder [Unknown]
  - Eructation [Not Recovered/Not Resolved]
  - Dyspepsia [Recovering/Resolving]
  - Gastrooesophageal reflux disease [Recovering/Resolving]
  - Concomitant disease aggravated [Recovering/Resolving]
